FAERS Safety Report 12846826 (Version 1)
Quarter: 2016Q4

REPORT INFORMATION
  Report Type: Spontaneous
  Country: FR (occurrence: FR)
  Receive Date: 20161014
  Receipt Date: 20161014
  Transmission Date: 20170207
  Serious: Yes (Hospitalization)
  Sender: FDA-Public Use
  Company Number: FR-ASTRAZENECA-2016SF07925

PATIENT
  Age: 81 Year
  Sex: Male

DRUGS (13)
  1. UVEDOSE [Concomitant]
     Active Substance: CHOLECALCIFEROL
  2. CORTANCYL [Concomitant]
     Active Substance: PREDNISONE
  3. DALACINE [Suspect]
     Active Substance: CLINDAMYCIN HYDROCHLORIDE
     Indication: STAPHYLOCOCCAL INFECTION
     Route: 042
     Dates: start: 20160229
  4. LEVOTHYROX [Concomitant]
     Active Substance: LEVOTHYROXINE
  5. AMLODIPINE [Concomitant]
     Active Substance: AMLODIPINE BESYLATE
  6. CARTEOL SR COLLYRE [Concomitant]
  7. TARGOCID [Suspect]
     Active Substance: TEICOPLANIN
     Indication: STAPHYLOCOCCAL INFECTION
     Route: 042
     Dates: start: 20160226
  8. OROCAL VITAMIN D3 [Concomitant]
  9. PIPERACILLIN AND TAZOBACTAM [Suspect]
     Active Substance: PIPERACILLIN SODIUM\TAZOBACTAM SODIUM
     Indication: STAPHYLOCOCCAL INFECTION
     Dosage: MYLAN
     Route: 042
     Dates: start: 20160303
  10. PREVISCAN [Concomitant]
     Active Substance: FLUINDIONE
     Route: 048
  11. FLECAINE [Concomitant]
     Active Substance: FLECAINIDE
  12. INEXIUM [Suspect]
     Active Substance: ESOMEPRAZOLE
     Route: 048
  13. SIMVASTATINE [Concomitant]
     Active Substance: SIMVASTATIN

REACTIONS (6)
  - Diarrhoea [Unknown]
  - Enterobacter infection [Unknown]
  - Staphylococcal infection [Unknown]
  - Septic shock [Unknown]
  - Histiocytosis haematophagic [Recovered/Resolved]
  - Pyrexia [Unknown]

NARRATIVE: CASE EVENT DATE: 2016
